FAERS Safety Report 20440412 (Version 1)
Quarter: 2022Q1

REPORT INFORMATION
  Report Type: Spontaneous
  Country: IT (occurrence: IT)
  Receive Date: 20220207
  Receipt Date: 20220207
  Transmission Date: 20220424
  Serious: Yes (Other)
  Sender: FDA-Public Use
  Company Number: None

PATIENT
  Age: 73 Year
  Sex: Female

DRUGS (2)
  1. ABEMACICLIB [Suspect]
     Active Substance: ABEMACICLIB
     Indication: Breast cancer recurrent
     Dosage: 100 MG, UNKNOWN
     Route: 048
     Dates: start: 20210323, end: 20220119
  2. TICHE [Concomitant]
     Indication: Product used for unknown indication
     Route: 048

REACTIONS (2)
  - Vitamin B12 deficiency [Unknown]
  - Neutropenia [Unknown]

NARRATIVE: CASE EVENT DATE: 20220119
